FAERS Safety Report 4933307-X (Version None)
Quarter: 2006Q1

REPORT INFORMATION
  Report Type: 
  Country: None (occurrence: None)
  Receive Date: 20060106
  Receipt Date: 20051004
  Transmission Date: 20060701
  Serious: No
  Sender: FDA-Public Use
  Company Number: 200511096BWH

PATIENT
  Age: 77 Year
  Sex: Male

DRUGS (10)
  1. LEVITRA [Suspect]
     Indication: ERECTILE DYSFUNCTION
     Dosage: 20 MG, QD, ORAL
     Route: 048
     Dates: start: 20050530, end: 20050531
  2. CALCIUM WITH VITAMIN D [Concomitant]
  3. Q-BID DM [Concomitant]
  4. SINGULAIR [Concomitant]
  5. LANOXIN [Concomitant]
  6. PREDNISONE [Concomitant]
  7. ZOCOR [Concomitant]
  8. ACTONEL [Concomitant]
  9. ASPIRIN [Concomitant]
  10. CELEBREX [Concomitant]

REACTIONS (3)
  - ERECTILE DYSFUNCTION [None]
  - EYE PAIN [None]
  - HEADACHE [None]
